FAERS Safety Report 18126947 (Version 5)
Quarter: 2020Q4

REPORT INFORMATION
  Report Type: Report from Study
  Country: US (occurrence: US)
  Receive Date: 20200810
  Receipt Date: 20201216
  Transmission Date: 20210113
  Serious: Yes (Other)
  Sender: FDA-Public Use
  Company Number: NVSC2020US216576

PATIENT
  Age: 31 Year
  Sex: Female

DRUGS (7)
  1. SPIRONOLACTONE. [Concomitant]
     Active Substance: SPIRONOLACTONE
     Indication: PRODUCT USED FOR UNKNOWN INDICATION
     Dosage: UNK (TAKING IN THE MORNING)
     Route: 065
  2. LASIX [Concomitant]
     Active Substance: FUROSEMIDE
     Indication: PRODUCT USED FOR UNKNOWN INDICATION
     Dosage: 120 MG, BID (80 MG IN MORNING AND 40 MG IN NOON)
     Route: 065
  3. ENTRESTO [Suspect]
     Active Substance: SACUBITRIL\VALSARTAN
     Indication: CARDIAC FAILURE
     Dosage: 50 MG, BID (FOR S/P PREGNANCY)
     Route: 048
     Dates: start: 201907
  4. ENTRESTO [Suspect]
     Active Substance: SACUBITRIL\VALSARTAN
     Dosage: 100 MG, BID
     Route: 048
     Dates: start: 202011
  5. LASIX [Concomitant]
     Active Substance: FUROSEMIDE
     Dosage: 40 MG, QD
     Route: 065
     Dates: start: 202011
  6. POTASSIUM [Concomitant]
     Active Substance: POTASSIUM
     Indication: PRODUCT USED FOR UNKNOWN INDICATION
     Dosage: UNK
     Route: 065
  7. ENTRESTO [Suspect]
     Active Substance: SACUBITRIL\VALSARTAN
     Dosage: 50 MG, BID (24/26)
     Route: 048
     Dates: start: 20200719

REACTIONS (10)
  - Diabetes mellitus [Unknown]
  - Ejection fraction abnormal [Recovering/Resolving]
  - Malaise [Unknown]
  - Glycosylated haemoglobin increased [Unknown]
  - Swelling [Unknown]
  - Weight increased [Unknown]
  - Type 2 diabetes mellitus [Recovering/Resolving]
  - Fluid retention [Unknown]
  - Blood glucose increased [Unknown]
  - Renal disorder [Unknown]

NARRATIVE: CASE EVENT DATE: 201907
